FAERS Safety Report 9299307 (Version 1)
Quarter: 2013Q2

REPORT INFORMATION
  Report Type: Spontaneous
  Country: SG (occurrence: SG)
  Receive Date: 20130520
  Receipt Date: 20130520
  Transmission Date: 20140414
  Serious: Yes (Other)
  Sender: FDA-Public Use
  Company Number: PHHY2013SG048828

PATIENT
  Age: 84 Year
  Sex: Female

DRUGS (2)
  1. ALENDRONATE [Suspect]
     Dosage: 70 MG, QW
  2. CALCIFEROL [Concomitant]
     Dosage: UNK UKN, UNK

REACTIONS (5)
  - Stress fracture [Unknown]
  - Ulna fracture [Unknown]
  - Arthralgia [Unknown]
  - Periprosthetic fracture [Unknown]
  - Hip fracture [Unknown]
